FAERS Safety Report 6224044-2 (Version None)
Quarter: 2009Q2

REPORT INFORMATION
  Report Type: 
  Country: None (occurrence: None)
  Receive Date: 20090612
  Receipt Date: 20090309
  Transmission Date: 20091009
  Serious: No
  Sender: FDA-Public Use
  Company Number: US-ABBOTT-09P-163-0561266-00

PATIENT
  Sex: Female
  Weight: 73.548 kg

DRUGS (13)
  1. HUMIRA [Suspect]
     Indication: RHEUMATOID ARTHRITIS
     Route: 058
     Dates: start: 20081201
  2. FENTANYL [Concomitant]
     Indication: MIGRAINE
     Dosage: PATCH
     Route: 061
  3. FROVA [Concomitant]
     Indication: MIGRAINE
     Route: 048
  4. CYMBALTA [Concomitant]
     Indication: NEURALGIA
     Route: 048
  5. CYMBALTA [Concomitant]
     Indication: DEPRESSION
  6. SYNTHROID [Concomitant]
     Indication: HYPOTHYROIDISM
     Route: 048
  7. VITAMIN D [Concomitant]
     Indication: VITAMIN D DEFICIENCY
     Dosage: 50,000 IU
     Route: 048
     Dates: start: 20070101
  8. CARVEDILOL [Concomitant]
     Indication: HYPERTENSION
     Route: 048
  9. BENAZEPRIL/HCTZ [Concomitant]
     Indication: HYPERTENSION
     Dosage: 20/25
     Route: 048
  10. NEURONTIN [Concomitant]
     Indication: NEURALGIA
     Route: 048
  11. FLEXERIL [Concomitant]
     Indication: MUSCLE RELAXANT THERAPY
     Route: 048
  12. COMPAZINE [Concomitant]
     Indication: NAUSEA
     Dosage: UNSURE OF STRENGTH
     Route: 048
  13. COMPAZINE [Concomitant]
     Indication: MIGRAINE

REACTIONS (3)
  - MALAISE [None]
  - MIGRAINE [None]
  - SPINAL DISORDER [None]
